FAERS Safety Report 24045550 (Version 1)
Quarter: 2024Q3

REPORT INFORMATION
  Report Type: Spontaneous
  Country: JP (occurrence: JP)
  Receive Date: 20240703
  Receipt Date: 20240703
  Transmission Date: 20241017
  Serious: Yes (Death, Other)
  Sender: EMD SERONO INC
  Company Number: JP-Merck Healthcare KGaA-2024035758

PATIENT
  Age: 64 Year
  Sex: Male

DRUGS (3)
  1. BAVENCIO [Suspect]
     Active Substance: AVELUMAB
     Indication: Bladder transitional cell carcinoma
     Route: 041
  2. CISPLATIN [Suspect]
     Active Substance: CISPLATIN
     Indication: Bladder transitional cell carcinoma
  3. GEMCITABINE [Concomitant]
     Active Substance: GEMCITABINE
     Indication: Bladder transitional cell carcinoma

REACTIONS (2)
  - Death [Fatal]
  - Myelodysplastic syndrome [Not Recovered/Not Resolved]
